FAERS Safety Report 7368231-9 (Version None)
Quarter: 2011Q1

REPORT INFORMATION
  Report Type: 
  Country: None (occurrence: None)
  Receive Date: 20110323
  Receipt Date: 20110321
  Transmission Date: 20110831
  Serious: No
  Sender: FDA-Public Use
  Company Number: US-PFIZER INC-2011062126

PATIENT
  Sex: Female

DRUGS (12)
  1. PRILOSEC [Concomitant]
     Dosage: UNK
  2. XANAX [Concomitant]
     Dosage: UNK
  3. CARDURA [Concomitant]
     Dosage: UNK
  4. COMPAZINE [Concomitant]
     Dosage: UNK
  5. GLUCOTROL [Concomitant]
     Dosage: UNK
  6. LOPRESSOR [Concomitant]
     Dosage: UNK
  7. ZOLOFT [Suspect]
     Indication: DEPRESSION
  8. ASACOL [Concomitant]
     Dosage: UNK
  9. ZESTRIL [Concomitant]
     Dosage: UNK
  10. CARDIZEM [Concomitant]
     Dosage: UNK
  11. ZOLOFT [Suspect]
     Indication: ANXIETY
     Dosage: 25 MG, DAILY
     Route: 048
     Dates: start: 20110224
  12. ZOFRAN [Concomitant]
     Dosage: UNK

REACTIONS (3)
  - NERVOUSNESS [None]
  - EMOTIONAL DISORDER [None]
  - DRUG INEFFECTIVE [None]
